FAERS Safety Report 9296847 (Version 2)
Quarter: 2013Q2

REPORT INFORMATION
  Report Type: Spontaneous
  Country: US (occurrence: US)
  Receive Date: 20130517
  Receipt Date: 20130617
  Transmission Date: 20140414
  Serious: No
  Sender: FDA-Public Use
  Company Number: US-PFIZER INC-2013150901

PATIENT
  Age: 69 Year
  Sex: Female

DRUGS (13)
  1. SUTENT [Suspect]
     Indication: RENAL CELL CARCINOMA
     Dosage: 50 MG ONCE DAILY CYCLE 1
     Route: 048
     Dates: start: 20100825, end: 20100922
  2. SUTENT [Suspect]
     Dosage: 37.5 MG, (25+12.5, 1 EACH DAILY) CYCLE 2
     Route: 048
     Dates: start: 20101102, end: 20101214
  3. SUTENT [Suspect]
     Dosage: 37.5 MG ONCE DAILY CYCLE 4
     Route: 048
     Dates: start: 20101230, end: 20110129
  4. SUTENT [Suspect]
     Dosage: 37.5 MG ONCE DAILY CYCLE 5
     Route: 048
     Dates: start: 20110213, end: 20110312
  5. SUTENT [Suspect]
     Dosage: 37.5 MG ONCE DAILY CYCLE 6
     Route: 048
     Dates: start: 20110413, end: 20110503
  6. SUTENT [Suspect]
     Dosage: 37.5 MG ONCE DAILY CYCLE 7
     Route: 048
     Dates: start: 20110518, end: 20110614
  7. SUTENT [Suspect]
     Dosage: 37.5 MG ONCE DAILY CYCLE 8
     Route: 048
     Dates: start: 20110714, end: 20110810
  8. SUTENT [Suspect]
     Dosage: 37.5 MG ONCE DAILY CYCLE 9
     Route: 048
     Dates: start: 20110921, end: 20111004
  9. SUTENT [Suspect]
     Dosage: 37.5 MG ONCE DAILY CYCLE 10
     Route: 048
     Dates: start: 20111011, end: 20111107
  10. SUTENT [Suspect]
     Dosage: 37.5 MG ONCE DAILY CYCLE 11
     Route: 048
     Dates: start: 20111124, end: 20111221
  11. ZOMETA [Concomitant]
     Indication: METASTASES TO BONE
     Dosage: 4 MG, MONTHLY
     Route: 042
     Dates: start: 20100823, end: 201108
  12. DENOSUMAB [Concomitant]
     Indication: METASTASES TO BONE
     Dosage: 10 MG, 1X/DAY
     Dates: start: 20110930
  13. DENOSUMAB [Concomitant]
     Dosage: 120 MG, UNK
     Route: 058
     Dates: start: 20110930

REACTIONS (2)
  - Disease progression [Unknown]
  - Renal cell carcinoma [Unknown]
